FAERS Safety Report 13169643 (Version 1)
Quarter: 2017Q1

REPORT INFORMATION
  Report Type: Spontaneous
  Country: US (occurrence: US)
  Receive Date: 20170131
  Receipt Date: 20170131
  Transmission Date: 20170428
  Serious: Yes (Hospitalization)
  Sender: FDA-Public Use
  Company Number: US-ABBVIE-16K-163-1553637-00

PATIENT
  Age: 18 Year
  Sex: Female
  Weight: 61 kg

DRUGS (1)
  1. HUMIRA [Suspect]
     Active Substance: ADALIMUMAB
     Indication: CROHN^S DISEASE
     Route: 058
     Dates: start: 201504, end: 201504

REACTIONS (8)
  - Injection site swelling [Recovered/Resolved]
  - Crohn^s disease [Unknown]
  - Hepatitis [Recovering/Resolving]
  - Injection site erythema [Recovered/Resolved]
  - Disseminated tuberculosis [Recovering/Resolving]
  - Intra-abdominal fluid collection [Unknown]
  - Pancreatitis [Recovering/Resolving]
  - Latent tuberculosis [Recovering/Resolving]

NARRATIVE: CASE EVENT DATE: 201504
